FAERS Safety Report 4677938-3 (Version None)
Quarter: 2005Q2

REPORT INFORMATION
  Report Type: 
  Country: None (occurrence: None)
  Receive Date: 20050527
  Receipt Date: 20050527
  Transmission Date: 20051028
  Serious: Yes (Other)
  Sender: FDA-Public Use
  Company Number: None

PATIENT
  Age: 15 Year
  Sex: Male
  Weight: 52.1637 kg

DRUGS (1)
  1. ACCUTANE [Suspect]
     Indication: ACNE
     Dosage: ONE PILL PER DAY

REACTIONS (8)
  - ANGER [None]
  - ANOREXIA [None]
  - ASTHENIA [None]
  - CRYING [None]
  - DECREASED INTEREST [None]
  - DISTURBANCE IN ATTENTION [None]
  - INSOMNIA [None]
  - SOCIAL AVOIDANT BEHAVIOUR [None]
